FAERS Safety Report 4327957-1 (Version None)
Quarter: 2004Q1

REPORT INFORMATION
  Report Type: 
  Country: None (occurrence: None)
  Receive Date: 20040325
  Receipt Date: 20040309
  Transmission Date: 20041129
  Serious: Yes (Hospitalization)
  Sender: FDA-Public Use
  Company Number: 2004UW04841

PATIENT
  Age: 72 Year
  Sex: Male

DRUGS (2)
  1. CRESTOR [Suspect]
     Dosage: 10 MG QD PO
     Route: 048
  2. ZETIA [Suspect]

REACTIONS (3)
  - CHOLECYSTITIS [None]
  - DRUG INTERACTION [None]
  - PANCREATITIS [None]
